FAERS Safety Report 11781522 (Version 2)
Quarter: 2015Q4

REPORT INFORMATION
  Report Type: Spontaneous
  Country: BE (occurrence: BE)
  Receive Date: 20151126
  Receipt Date: 20151201
  Transmission Date: 20160305
  Serious: Yes (Other)
  Sender: FDA-Public Use
  Company Number: PHHY2015BE152857

PATIENT
  Age: 77 Year
  Sex: Female
  Weight: 31 kg

DRUGS (3)
  1. FENTANYL. [Suspect]
     Active Substance: FENTANYL
     Indication: PAIN MANAGEMENT
     Dosage: 150 UG/HR, UNK
     Route: 062
  2. LAXATIVE [Suspect]
     Active Substance: UNSPECIFIED INGREDIENT
     Indication: PAIN MANAGEMENT
     Route: 065
  3. PARACETAMOL [Suspect]
     Active Substance: ACETAMINOPHEN
     Indication: PAIN MANAGEMENT
     Dosage: 1 G, QID
     Route: 065

REACTIONS (1)
  - Drug ineffective [Unknown]
